FAERS Safety Report 18499249 (Version 2)
Quarter: 2021Q1

REPORT INFORMATION
  Report Type: Report from Study
  Country: JP (occurrence: JP)
  Receive Date: 20201112
  Receipt Date: 20210105
  Transmission Date: 20210419
  Serious: Yes (Hospitalization, Other)
  Sender: FDA-Public Use
  Company Number: JP-JNJFOC-A-CH2018-176431

PATIENT
  Age: 32 Year
  Sex: Male

DRUGS (38)
  1. LAC?B [Concomitant]
     Active Substance: BIFIDOBACTERIUM SPP.
     Route: 048
     Dates: start: 20160530
  2. LOPEMIN [Concomitant]
     Route: 048
     Dates: start: 20171201
  3. NAUZELIN [Concomitant]
     Active Substance: DOMPERIDONE
     Route: 048
     Dates: start: 20161107, end: 20170309
  4. DEPAKENE?R [Concomitant]
     Active Substance: VALPROATE SODIUM
     Indication: EPILEPSY
     Route: 048
  5. UPTRAVI [Suspect]
     Active Substance: SELEXIPAG
     Dosage: 0.8 MG, BID
     Route: 048
     Dates: start: 2017, end: 2017
  6. FLOLAN [Suspect]
     Active Substance: EPOPROSTENOL SODIUM
     Dosage: 3.0ML/HR, 41 NG/KG, PER MIN
     Route: 042
     Dates: start: 20160708, end: 20160808
  7. FLOLAN [Suspect]
     Active Substance: EPOPROSTENOL SODIUM
     Dosage: 3.2ML/HR, 43?44 NG/KG, PER MIN
     Route: 042
     Dates: start: 20161108, end: 20161227
  8. FLOLAN [Suspect]
     Active Substance: EPOPROSTENOL SODIUM
     Dosage: 44 NG/KG, PER MIN
     Route: 042
     Dates: start: 20161108, end: 20161227
  9. FLOLAN [Suspect]
     Active Substance: EPOPROSTENOL SODIUM
     Dosage: 2.9ML/HR, 39.9 NG/KG, PER MIN
     Route: 042
     Dates: start: 20171117
  10. FUROSEMIDE. [Concomitant]
     Active Substance: FUROSEMIDE
     Route: 048
     Dates: start: 20160905
  11. LOPEMIN [Concomitant]
     Indication: DIARRHOEA
     Route: 048
     Dates: start: 20160530, end: 20170511
  12. BIOFERMIN R [Concomitant]
     Active Substance: DIETARY SUPPLEMENT\PROBIOTICS
     Route: 048
     Dates: start: 20190122, end: 20190128
  13. ENTERONON?R [Concomitant]
     Active Substance: PROBIOTICS NOS
     Indication: PROPHYLAXIS
     Route: 048
     Dates: start: 20181207, end: 20181213
  14. LAC?B [Concomitant]
     Active Substance: BIFIDOBACTERIUM SPP.
     Indication: DIARRHOEA
     Route: 048
     Dates: start: 20160530
  15. FUROSEMIDE. [Concomitant]
     Active Substance: FUROSEMIDE
     Indication: RIGHT VENTRICULAR FAILURE
     Dosage: 40MG AND 20MG/DAY
     Route: 048
     Dates: start: 20160530, end: 20160904
  16. FEBURIC [Concomitant]
     Active Substance: FEBUXOSTAT
     Indication: GOUT
     Route: 048
     Dates: start: 20160530
  17. NAUZELIN [Concomitant]
     Active Substance: DOMPERIDONE
     Indication: NAUSEA
     Route: 048
     Dates: start: 20160530, end: 20160707
  18. FLOLAN [Suspect]
     Active Substance: EPOPROSTENOL SODIUM
     Indication: PULMONARY ARTERIAL HYPERTENSION
     Dosage: 3.1ML/HR, 42 NG/KG, PER MIN
     Route: 042
     Dates: start: 20161228, end: 20171116
  19. FLOLAN [Suspect]
     Active Substance: EPOPROSTENOL SODIUM
     Dosage: 38 NG/KG, PER MIN
     Route: 042
     Dates: start: 20160530, end: 20160530
  20. FLOLAN [Suspect]
     Active Substance: EPOPROSTENOL SODIUM
     Dosage: 39?40 NG/KG, PER MIN
     Route: 042
     Dates: start: 20160531, end: 20160707
  21. VANCOMYCIN HYDROCHLORIDE. [Suspect]
     Active Substance: VANCOMYCIN HYDROCHLORIDE
     Indication: DEVICE RELATED INFECTION
     Route: 042
     Dates: start: 20190326, end: 20190403
  22. SELARA [Concomitant]
     Active Substance: EPLERENONE
     Indication: RIGHT VENTRICULAR FAILURE
     Route: 048
     Dates: start: 20160530
  23. CRAVIT [Concomitant]
     Active Substance: LEVOFLOXACIN
     Indication: DERMATITIS CONTACT
     Route: 048
     Dates: start: 20160615
  24. BIOFERMIN R [Concomitant]
     Active Substance: DIETARY SUPPLEMENT\PROBIOTICS
     Indication: PROPHYLAXIS
     Route: 048
     Dates: start: 20180724, end: 20180730
  25. FLOLAN [Suspect]
     Active Substance: EPOPROSTENOL SODIUM
     Dosage: 3.1ML/HR, 42 NG/KG, PER MIN
     Route: 042
     Dates: start: 20160809, end: 20161106
  26. ZYVOX [Suspect]
     Active Substance: LINEZOLID
     Indication: DEVICE RELATED INFECTION
     Route: 042
     Dates: start: 20190404, end: 20190404
  27. LOPEMIN [Concomitant]
     Route: 048
     Dates: start: 20170512, end: 20171130
  28. E KEPPRA [Concomitant]
     Active Substance: LEVETIRACETAM
     Route: 048
  29. UPTRAVI [Suspect]
     Active Substance: SELEXIPAG
     Indication: PULMONARY ARTERIAL HYPERTENSION
     Dosage: 0.2 MG, QD
     Route: 048
     Dates: start: 20171017, end: 2017
  30. FLOLAN [Suspect]
     Active Substance: EPOPROSTENOL SODIUM
     Dosage: 40 NG/KG, PER MIN
     Route: 042
     Dates: start: 20160531, end: 20160707
  31. SELARA [Concomitant]
     Active Substance: EPLERENONE
     Dosage: 25MG AND 50MG/DAY
     Route: 048
     Dates: start: 20160905
  32. ADCIRCA [Concomitant]
     Active Substance: TADALAFIL
     Indication: PULMONARY ARTERIAL HYPERTENSION
     Route: 048
     Dates: start: 20160530
  33. E KEPPRA [Concomitant]
     Active Substance: LEVETIRACETAM
     Route: 048
  34. NEXIUM [Concomitant]
     Active Substance: ESOMEPRAZOLE MAGNESIUM
     Indication: PROPHYLAXIS
     Route: 048
     Dates: start: 20180731, end: 20181113
  35. FEBURIC [Concomitant]
     Active Substance: FEBUXOSTAT
     Dosage: 10?20MG QD
     Route: 048
  36. OPSUMIT [Suspect]
     Active Substance: MACITENTAN
     Indication: PULMONARY ARTERIAL HYPERTENSION
     Dosage: 10 MG, QD
     Route: 048
     Dates: start: 20160530
  37. UPTRAVI [Suspect]
     Active Substance: SELEXIPAG
     Dosage: 1 MG, BID
     Route: 048
     Dates: start: 20171117
  38. E KEPPRA [Concomitant]
     Active Substance: LEVETIRACETAM
     Indication: EPILEPSY
     Route: 048

REACTIONS (12)
  - Nasopharyngitis [Recovered/Resolved]
  - Headache [Recovering/Resolving]
  - Thyroiditis [Recovered/Resolved]
  - Tinnitus [Recovered/Resolved]
  - Pain in extremity [Recovered/Resolved]
  - Concomitant disease aggravated [Recovered/Resolved]
  - Drug hypersensitivity [Recovered/Resolved]
  - Hyperthyroidism [Recovering/Resolving]
  - Deafness [Recovered/Resolved]
  - Oropharyngeal pain [Recovered/Resolved]
  - Device related infection [Recovered/Resolved]
  - Pneumonia bacterial [Recovered/Resolved]

NARRATIVE: CASE EVENT DATE: 20170512
